FAERS Safety Report 24103368 (Version 1)
Quarter: 2024Q3

REPORT INFORMATION
  Report Type: Spontaneous
  Country: US (occurrence: US)
  Receive Date: 20240717
  Receipt Date: 20240717
  Transmission Date: 20241016
  Serious: Yes (Death, Other)
  Sender: AMGEN
  Company Number: US-AMGEN-USASP2024137519

PATIENT

DRUGS (3)
  1. PREDNISONE [Suspect]
     Active Substance: PREDNISONE
     Indication: Prostate cancer metastatic
     Dosage: 5 MILLIGRAM, BID
     Route: 048
  2. ABIRATERONE [Suspect]
     Active Substance: ABIRATERONE
     Indication: Prostate cancer metastatic
     Dosage: 1000 MILLIGRAM, QD
     Route: 048
  3. PEMBROLIZUMAB [Suspect]
     Active Substance: PEMBROLIZUMAB
     Indication: Prostate cancer metastatic
     Dosage: 200 MILLIGRAM, Q3WK
     Route: 042

REACTIONS (31)
  - Adverse event [Fatal]
  - Myasthenic syndrome [Fatal]
  - Hypokalaemia [Unknown]
  - Hyperthyroidism [Unknown]
  - Prostate cancer metastatic [Unknown]
  - Hepatitis [Unknown]
  - Myocarditis [Unknown]
  - Colitis [Unknown]
  - Adrenal insufficiency [Unknown]
  - Pneumonitis [Unknown]
  - Encephalitis [Unknown]
  - Hypothyroidism [Unknown]
  - Diarrhoea [Unknown]
  - Hyperglycaemia [Unknown]
  - Nausea [Unknown]
  - Hypertension [Unknown]
  - Pruritus [Unknown]
  - Arthralgia [Unknown]
  - Alanine aminotransferase increased [Unknown]
  - Aspartate aminotransferase increased [Unknown]
  - Myositis [Unknown]
  - Fatigue [Unknown]
  - Rash [Unknown]
  - Myalgia [Unknown]
  - Oedema peripheral [Unknown]
  - Headache [Unknown]
  - Asthenia [Unknown]
  - Infusion related reaction [Unknown]
  - Skin reaction [Unknown]
  - Decreased appetite [Unknown]
  - Vomiting [Unknown]
